FAERS Safety Report 13042743 (Version 3)
Quarter: 2017Q1

REPORT INFORMATION
  Report Type: Report from Study
  Country: None (occurrence: NL)
  Receive Date: 20161219
  Receipt Date: 20170315
  Transmission Date: 20170428
  Serious: Yes (Other)
  Sender: FDA-Public Use
  Company Number: NL-ABBVIE-16P-114-1815022-00

PATIENT
  Age: 49 Year
  Sex: Female
  Weight: 75 kg

DRUGS (5)
  1. TAMOXIFEN [Suspect]
     Active Substance: TAMOXIFEN
     Indication: BREAST CANCER
     Route: 048
  2. LUCRIN DEPOT [Suspect]
     Active Substance: LEUPROLIDE ACETATE
     Indication: BREAST CANCER
     Route: 050
     Dates: start: 20141112
  3. LUCRIN DEPOT [Suspect]
     Active Substance: LEUPROLIDE ACETATE
     Route: 050
     Dates: start: 20170308, end: 20170308
  4. LUCRIN DEPOT [Suspect]
     Active Substance: LEUPROLIDE ACETATE
     Route: 050
  5. DEXAMETHASONE/TOBRAMYCIN [Concomitant]
     Indication: PRODUCT USED FOR UNKNOWN INDICATION
     Dosage: 1/3 MG/ML
     Route: 047

REACTIONS (1)
  - Cataract [Recovering/Resolving]

NARRATIVE: CASE EVENT DATE: 201608
